FAERS Safety Report 6606549-5 (Version None)
Quarter: 2010Q1

REPORT INFORMATION
  Report Type: 
  Country: None (occurrence: None)
  Receive Date: 20100226
  Receipt Date: 20100216
  Transmission Date: 20100710
  Serious: Yes (Other)
  Sender: FDA-Public Use
  Company Number: US-JNJCH-2010004643

PATIENT
  Age: 67 Year
  Sex: Female
  Weight: 56.7 kg

DRUGS (2)
  1. ROLAIDS [Suspect]
     Indication: ABDOMINAL DISCOMFORT
     Dosage: TEXT:2 TABLETS MAYBE TWICE WEEKLY
     Route: 048
  2. TYLENOL-500 [Suspect]
     Indication: DRUG USE FOR UNKNOWN INDICATION
     Dosage: TEXT:UNSPECIFIED
     Route: 065

REACTIONS (9)
  - ABDOMINAL PAIN UPPER [None]
  - DECREASED APPETITE [None]
  - DIARRHOEA [None]
  - EXPIRED DRUG ADMINISTERED [None]
  - HYPERCHLORHYDRIA [None]
  - NAUSEA [None]
  - URTICARIA [None]
  - VOMITING [None]
  - WEIGHT DECREASED [None]
